FAERS Safety Report 13094215 (Version 1)
Quarter: 2017Q1

REPORT INFORMATION
  Report Type: Spontaneous
  Country: TR (occurrence: TR)
  Receive Date: 20170106
  Receipt Date: 20170106
  Transmission Date: 20170428
  Serious: Yes (Other)
  Sender: FDA-Public Use
  Company Number: TR-GE HEALTHCARE MEDICAL DIAGNOSTICS-OMPQ-PR-1612L-2414

PATIENT
  Age: 20 Year
  Sex: Female

DRUGS (3)
  1. OMNIPAQUE [Suspect]
     Active Substance: IOHEXOL
     Indication: INTERVERTEBRAL DISC PROTRUSION
     Route: 037
  2. GENERAL ANESTHESIA [Concomitant]
     Active Substance: UNSPECIFIED INGREDIENT
  3. OMNIPAQUE [Suspect]
     Active Substance: IOHEXOL
     Indication: THERAPEUTIC PROCEDURE

REACTIONS (2)
  - Incorrect route of drug administration [Recovered/Resolved]
  - Generalised tonic-clonic seizure [Recovered/Resolved]
